FAERS Safety Report 9690555 (Version 1)
Quarter: 2013Q4

REPORT INFORMATION
  Report Type: Report from Study
  Country: US (occurrence: US)
  Receive Date: 20131115
  Receipt Date: 20131115
  Transmission Date: 20140711
  Serious: Yes (Other)
  Sender: FDA-Public Use
  Company Number: US-ROCHE-1298883

PATIENT
  Sex: Female
  Weight: 56 kg

DRUGS (9)
  1. AVASTIN [Suspect]
     Indication: OVARIAN CANCER
     Dosage: IN NORMAL SALINE (OVER 30 MINUTES)
     Route: 042
     Dates: start: 20110721
  2. AVASTIN [Suspect]
     Indication: OVARIAN CANCER
  3. TAXOL [Concomitant]
     Route: 042
  4. TAXOL [Concomitant]
     Route: 042
  5. CISPLATIN [Concomitant]
     Route: 033
  6. GEMZAR [Concomitant]
     Dosage: AY 1 AND 15
     Route: 042
  7. CYTOXAN [Concomitant]
  8. CARBOPLATIN [Concomitant]
     Dosage: DAY 1 AND 15
     Route: 042
  9. NORMAL SALINE [Concomitant]
     Route: 065

REACTIONS (3)
  - Ascites [Unknown]
  - Blood pressure increased [Unknown]
  - Thrombocytopenia [Unknown]
